FAERS Safety Report 20559192 (Version 1)
Quarter: 2022Q1

REPORT INFORMATION
  Report Type: Spontaneous
  Country: US (occurrence: US)
  Receive Date: 20220307
  Receipt Date: 20220307
  Transmission Date: 20220423
  Serious: Yes (Other)
  Sender: FDA-Public Use
  Company Number: US-MYLANLABS-2022M1017013

PATIENT
  Age: 55 Year
  Sex: Female

DRUGS (4)
  1. HYDROCORTISONE [Suspect]
     Active Substance: HYDROCORTISONE
     Indication: Eosinophilic cellulitis
     Dosage: UNK
     Route: 061
  2. PERMETHRIN [Suspect]
     Active Substance: PERMETHRIN
     Indication: Eosinophilic cellulitis
     Dosage: UNK
     Route: 061
  3. HYDROXYZINE [Suspect]
     Active Substance: HYDROXYZINE HYDROCHLORIDE
     Indication: Eosinophilic cellulitis
     Dosage: UNK
     Route: 048
  4. RITUXIMAB [Suspect]
     Active Substance: RITUXIMAB
     Indication: Eosinophilic cellulitis
     Dosage: UNK
     Route: 065

REACTIONS (1)
  - Drug ineffective [Unknown]
